FAERS Safety Report 5425571-8 (Version None)
Quarter: 2007Q3

REPORT INFORMATION
  Report Type: 
  Country: None (occurrence: None)
  Receive Date: 20070824
  Receipt Date: 20070813
  Transmission Date: 20080115
  Serious: Yes (Hospitalization, Other)
  Sender: FDA-Public Use
  Company Number: US-PFIZER INC-2007066923

PATIENT
  Sex: Female

DRUGS (2)
  1. CELEBREX [Suspect]
     Indication: BACK PAIN
  2. BEXTRA [Suspect]
     Indication: BACK PAIN
     Dates: start: 20020718

REACTIONS (2)
  - GASTROINTESTINAL DISORDER [None]
  - THROMBOSIS [None]
